FAERS Safety Report 16481724 (Version 1)
Quarter: 2019Q2

REPORT INFORMATION
  Report Type: Spontaneous
  Country: US (occurrence: US)
  Receive Date: 20190627
  Receipt Date: 20190627
  Transmission Date: 20190711
  Serious: Yes (Hospitalization)
  Sender: FDA-Public Use
  Company Number: US-ROCHE-2343845

PATIENT
  Age: 70 Year
  Sex: Female
  Weight: 140.74 kg

DRUGS (5)
  1. METFORMIN [Concomitant]
     Active Substance: METFORMIN HYDROCHLORIDE
     Indication: GLUCOSE TOLERANCE IMPAIRED
     Route: 065
  2. ESBRIET [Suspect]
     Active Substance: PIRFENIDONE
     Indication: PULMONARY FIBROSIS
     Dosage: THREE 267 MG TABLETS 3X^S DAY
     Route: 048
     Dates: start: 20190429, end: 201905
  3. DOXYCYCLINE. [Concomitant]
     Active Substance: DOXYCYCLINE
     Route: 065
     Dates: start: 20190527, end: 201905
  4. INSULIN [Concomitant]
     Active Substance: INSULIN NOS
     Indication: BLOOD GLUCOSE INCREASED
     Route: 065
  5. ESBRIET [Suspect]
     Active Substance: PIRFENIDONE
     Dosage: TWO 267 MG TABLETS 3X^S DAY
     Route: 048
     Dates: start: 20190501

REACTIONS (8)
  - Oxygen saturation decreased [Recovered/Resolved]
  - Blood disorder [Recovered/Resolved]
  - Pruritus generalised [Not Recovered/Not Resolved]
  - Loss of consciousness [Recovered/Resolved]
  - Heart rate increased [Recovered/Resolved]
  - Rash macular [Not Recovered/Not Resolved]
  - Pneumonia [Recovered/Resolved]
  - Rash [Not Recovered/Not Resolved]

NARRATIVE: CASE EVENT DATE: 201905
